FAERS Safety Report 21015312 (Version 18)
Quarter: 2023Q2

REPORT INFORMATION
  Report Type: Report from Study
  Country: US (occurrence: US)
  Receive Date: 20220628
  Receipt Date: 20230616
  Transmission Date: 20230721
  Serious: Yes (Life-Threatening, Hospitalization, Other)
  Sender: FDA-Public Use
  Company Number: US-ARGENX-2022-ARGX-US001051

PATIENT
  Age: 59 Year
  Sex: Male

DRUGS (2)
  1. VYVGART [Suspect]
     Active Substance: EFGARTIGIMOD ALFA-FCAB
     Indication: Myasthenia gravis
     Dosage: 1200 MG ONCE WEEKLY
     Route: 042
     Dates: start: 20220614
  2. VUMERITY [Concomitant]
     Active Substance: DIROXIMEL FUMARATE
     Indication: Product used for unknown indication

REACTIONS (19)
  - Endotracheal intubation [Unknown]
  - Myasthenia gravis crisis [Recovering/Resolving]
  - Dyspnoea [Recovering/Resolving]
  - Disease recurrence [Recovering/Resolving]
  - Myasthenia gravis crisis [Unknown]
  - Positive airway pressure therapy [Unknown]
  - Thymectomy [Unknown]
  - Catheterisation venous [Unknown]
  - Plasmapheresis [Unknown]
  - Eating disorder [Unknown]
  - Dysphagia [Recovering/Resolving]
  - Eyelid ptosis [Unknown]
  - Muscular weakness [Recovering/Resolving]
  - Condition aggravated [Unknown]
  - Therapy interrupted [Unknown]
  - Muscle tightness [Unknown]
  - Product dose omission issue [Unknown]
  - Accidental overdose [Recovered/Resolved]
  - Off label use [Unknown]

NARRATIVE: CASE EVENT DATE: 20220630
